FAERS Safety Report 4459653-4 (Version None)
Quarter: 2004Q3

REPORT INFORMATION
  Report Type: 
  Country: None (occurrence: None)
  Receive Date: 20040917
  Receipt Date: 20030812
  Transmission Date: 20050211
  Serious: No
  Sender: FDA-Public Use
  Company Number: 20030800006

PATIENT
  Sex: Female

DRUGS (5)
  1. FENTANYL [Suspect]
     Dosage: 50 MCG DAILY
     Dates: start: 20030804, end: 20030804
  2. VERSED [Concomitant]
  3. ROPIVACAINE [Concomitant]
  4. VEXTRA [Concomitant]
  5. PREMARIN [Concomitant]

REACTIONS (1)
  - PSYCHOTIC DISORDER [None]
